FAERS Safety Report 8493505-8 (Version None)
Quarter: 2012Q2

REPORT INFORMATION
  Report Type: 
  Country: None (occurrence: None)
  Receive Date: 20120627
  Receipt Date: 20120615
  Transmission Date: 20120825
  Serious: Yes (Other)
  Sender: FDA-Public Use
  Company Number: DSA_58065_2012

PATIENT

DRUGS (5)
  1. CISPLATIN [Suspect]
     Indication: NEUROBLASTOMA
     Dosage: (60 MG/M2 (MONTHLY))
  2. METHOTREXATE SODIUM [Suspect]
     Indication: NEUROBLASTOMA
     Dosage: (30 MG/M2 (MONTHLY))
  3. FLUOROURACIL [Suspect]
     Indication: NEUROBLASTOMA
     Dosage: (600 MG/M2)
  4. THERAPEUTIC RADIOPHARMACEUTICALS (THERAPEUTIC RADIOPHARMACEUTICALS) [Suspect]
     Dosage: (DF)
  5. LEUCOVORIN CALCIUM [Suspect]
     Indication: NEUROBLASTOMA
     Dosage: (20 MG/M2)

REACTIONS (1)
  - ANAEMIA [None]
